FAERS Safety Report 8595583-4 (Version None)
Quarter: 2012Q3

REPORT INFORMATION
  Report Type: 
  Country: None (occurrence: None)
  Receive Date: 20120815
  Receipt Date: 20070608
  Transmission Date: 20120928
  Serious: Yes (Other)
  Sender: FDA-Public Use
  Company Number: CO-PFIZER INC-2012193844

PATIENT
  Age: 68 Year
  Sex: Female

DRUGS (3)
  1. LIPITOR [Suspect]
     Indication: DYSLIPIDAEMIA
     Dosage: 10 MG, ONCE DAILY
  2. ACETYLSALICYLIC ACID [Concomitant]
     Dosage: 100 MG,ONCE DAILY
  3. VERAPAMIL HYDROCHLORIDE [Concomitant]
     Dosage: 80 MG, ONCE DAILY

REACTIONS (2)
  - ARTHRALGIA [None]
  - HYPERTENSIVE EMERGENCY [None]
